FAERS Safety Report 21805818 (Version 1)
Quarter: 2023Q1

REPORT INFORMATION
  Report Type: Spontaneous
  Country: FI (occurrence: FI)
  Receive Date: 20230102
  Receipt Date: 20230102
  Transmission Date: 20230418
  Serious: Yes (Life-Threatening, Other)
  Sender: FDA-Public Use
  Company Number: None

PATIENT

DRUGS (1)
  1. BUPROPION HYDROCHLORIDE [Suspect]
     Active Substance: BUPROPION HYDROCHLORIDE
     Indication: Anxiety
     Dosage: 150 MG, QD
     Route: 048
     Dates: start: 20221026, end: 20221106

REACTIONS (10)
  - Anxiety [Recovering/Resolving]
  - Performance status decreased [Recovering/Resolving]
  - Psychotic disorder [Recovering/Resolving]
  - Suicide attempt [Recovering/Resolving]
  - Memory impairment [Recovering/Resolving]
  - Depressed mood [Recovering/Resolving]
  - Overdose [Recovering/Resolving]
  - Derealisation [Recovering/Resolving]
  - Incoherent [Recovering/Resolving]
  - Decreased activity [Recovering/Resolving]

NARRATIVE: CASE EVENT DATE: 20221026
